FAERS Safety Report 15072921 (Version 1)
Quarter: 2018Q2

REPORT INFORMATION
  Report Type: Spontaneous
  Country: CH (occurrence: CH)
  Receive Date: 20180627
  Receipt Date: 20180627
  Transmission Date: 20180711
  Serious: Yes (Other)
  Sender: FDA-Public Use
  Company Number: CH-CONCORDIA PHARMACEUTICALS INC.-GSH201806-002159

PATIENT
  Sex: Female

DRUGS (3)
  1. PLAQUENIL [Suspect]
     Active Substance: HYDROXYCHLOROQUINE SULFATE
     Indication: PRODUCT USED FOR UNKNOWN INDICATION
     Route: 065
  2. CORTICOSTEROID [Concomitant]
     Active Substance: CORTICOSTEROID NOS
  3. SALAZOPYRINE [Concomitant]
     Active Substance: SULFASALAZINE

REACTIONS (1)
  - Toxic skin eruption [Unknown]
